FAERS Safety Report 17592958 (Version 1)
Quarter: 2020Q1

REPORT INFORMATION
  Report Type: Spontaneous
  Country: US (occurrence: US)
  Receive Date: 20200327
  Receipt Date: 20200327
  Transmission Date: 20200409
  Serious: Yes (Other)
  Sender: FDA-Public Use
  Company Number: US-BAUSCH-BL-2020-008360

PATIENT
  Age: 73 Year
  Sex: Female

DRUGS (2)
  1. OCEAN SALINE NASAL SPRAY [Suspect]
     Active Substance: SODIUM CHLORIDE
     Indication: SINUS DISORDER
     Dosage: HAD BEEN USING FOR YEARS
     Route: 045
  2. OCEAN SALINE NASAL SPRAY [Suspect]
     Active Substance: SODIUM CHLORIDE
     Indication: CERUMEN REMOVAL
     Route: 001

REACTIONS (7)
  - Product prescribing error [Unknown]
  - Ear infection viral [Unknown]
  - Deafness [Not Recovered/Not Resolved]
  - Recalled product administered [Unknown]
  - Incorrect route of product administration [Unknown]
  - Tinnitus [Not Recovered/Not Resolved]
  - Ear injury [Unknown]

NARRATIVE: CASE EVENT DATE: 201801
